FAERS Safety Report 4302671-7 (Version None)
Quarter: 2004Q1

REPORT INFORMATION
  Report Type: 
  Country: None (occurrence: None)
  Receive Date: 20040126
  Receipt Date: 20031015
  Transmission Date: 20041129
  Serious: No
  Sender: FDA-Public Use
  Company Number: USA031049668

PATIENT
  Age: 10 Year
  Sex: Male
  Weight: 49 kg

DRUGS (1)
  1. STRATTERA [Suspect]
     Indication: ATTENTION DEFICIT/HYPERACTIVITY DISORDER
     Dosage: 40 MG/DAY
     Dates: start: 20031006, end: 20031006

REACTIONS (3)
  - ABNORMAL BEHAVIOUR [None]
  - EYE DISORDER [None]
  - SOMNOLENCE [None]
